FAERS Safety Report 20831398 (Version 1)
Quarter: 2022Q2

REPORT INFORMATION
  Report Type: Spontaneous
  Country: US (occurrence: US)
  Receive Date: 20220516
  Receipt Date: 20220516
  Transmission Date: 20220721
  Serious: No
  Sender: FDA-Public Use
  Company Number: US-ELI_LILLY_AND_COMPANY-US202205005442

PATIENT

DRUGS (1)
  1. TRULICITY [Suspect]
     Active Substance: DULAGLUTIDE
     Indication: Weight abnormal
     Dosage: UNK UNK, UNKNOWN
     Route: 065

REACTIONS (2)
  - Abdominal discomfort [Unknown]
  - Off label use [Unknown]
